FAERS Safety Report 4733246-3 (Version None)
Quarter: 2005Q3

REPORT INFORMATION
  Report Type: 
  Country: None (occurrence: None)
  Receive Date: 20050802
  Receipt Date: 20050718
  Transmission Date: 20060218
  Serious: Yes (Other)
  Sender: FDA-Public Use
  Company Number: 2005-DE-02808GD

PATIENT
  Age: 44 Year
  Sex: Male

DRUGS (4)
  1. ACETAMINOPHEN [Suspect]
  2. CODEINE SUL TAB [Suspect]
  3. NAPROXEN [Suspect]
  4. SIMVASTATIN [Suspect]
     Dosage: 40 MG

REACTIONS (2)
  - ALANINE AMINOTRANSFERASE INCREASED [None]
  - DRUG INTERACTION [None]
